FAERS Safety Report 13069825 (Version 1)
Quarter: 2016Q4

REPORT INFORMATION
  Report Type: Report from Study
  Country: None (occurrence: US)
  Receive Date: 20161228
  Receipt Date: 20161228
  Transmission Date: 20170207
  Serious: Yes (Other)
  Sender: FDA-Public Use
  Company Number: US-ABBVIE-16K-163-1817998-00

PATIENT
  Sex: Female

DRUGS (2)
  1. HUMIRA [Suspect]
     Active Substance: ADALIMUMAB
     Route: 058
     Dates: start: 201606
  2. HUMIRA [Suspect]
     Active Substance: ADALIMUMAB
     Indication: PSORIATIC ARTHROPATHY
     Route: 058
     Dates: end: 2015

REACTIONS (7)
  - Fatigue [Unknown]
  - Drug interaction [Unknown]
  - Hypersomnia [Unknown]
  - Dyspnoea [Unknown]
  - Complication associated with device [Unknown]
  - Coronary artery occlusion [Recovered/Resolved]
  - Malaise [Unknown]
